FAERS Safety Report 7440283-7 (Version None)
Quarter: 2011Q2

REPORT INFORMATION
  Report Type: 
  Country: None (occurrence: None)
  Receive Date: 20110427
  Receipt Date: 20110426
  Transmission Date: 20111010
  Serious: Yes (Other)
  Sender: FDA-Public Use
  Company Number: ES-ABBOTT-11P-144-0721579-00

PATIENT
  Age: 46 Year
  Sex: Male

DRUGS (6)
  1. LAMIVUDINA/ABACAVIR [Interacting]
     Indication: HIV INFECTION
     Dosage: 600/300MG
     Dates: start: 20091201
  2. RISPERIDONA [Interacting]
     Indication: AGGRESSION
     Route: 048
     Dates: start: 20100505, end: 20101101
  3. MIRTAZAPINA [Interacting]
     Indication: DEPRESSION
     Route: 048
     Dates: start: 20100419, end: 20100902
  4. PREZISTA [Interacting]
     Indication: HIV INFECTION
     Route: 048
     Dates: start: 20091201
  5. NORVIR [Suspect]
     Indication: HIV INFECTION
     Route: 048
     Dates: start: 20091201
  6. PAROXETINA [Interacting]
     Indication: ANXIETY
     Route: 048
     Dates: start: 20100522, end: 20100902

REACTIONS (1)
  - WEIGHT INCREASED [None]
